FAERS Safety Report 6077853-7 (Version None)
Quarter: 2009Q1

REPORT INFORMATION
  Report Type: 
  Country: None (occurrence: None)
  Receive Date: 20090213
  Receipt Date: 20090210
  Transmission Date: 20090719
  Serious: Yes (Other)
  Sender: FDA-Public Use
  Company Number: US-ASTRAZENECA-2005UW15912

PATIENT
  Age: 62 Year
  Sex: Female

DRUGS (3)
  1. ARIMIDEX [Suspect]
     Indication: BREAST CANCER
     Route: 048
     Dates: start: 20050101, end: 20080914
  2. ARIMIDEX [Suspect]
     Route: 048
  3. ARIMIDEX [Suspect]
     Route: 048

REACTIONS (6)
  - ANXIETY [None]
  - CRYING [None]
  - ENDOMETRIOSIS [None]
  - HOT FLUSH [None]
  - INSOMNIA [None]
  - NERVOUSNESS [None]
